FAERS Safety Report 23234903 (Version 1)
Quarter: 2023Q4

REPORT INFORMATION
  Report Type: Spontaneous
  Country: US (occurrence: US)
  Receive Date: 20231128
  Receipt Date: 20231128
  Transmission Date: 20240110
  Serious: Yes (Other)
  Sender: FDA-Public Use
  Company Number: US-CURIUM-2023000857

PATIENT
  Age: 79 Year
  Sex: Female

DRUGS (2)
  1. SODIUM IODIDE I-131 [Suspect]
     Active Substance: SODIUM IODIDE I-131
     Indication: Follicular thyroid cancer
     Route: 065
     Dates: start: 2005, end: 2010
  2. LEVOTHYROXINE [Concomitant]
     Active Substance: LEVOTHYROXINE
     Indication: Follicular thyroid cancer
     Dosage: UNK
     Route: 065
     Dates: start: 2005, end: 2019

REACTIONS (2)
  - Endocrine ophthalmopathy [Recovering/Resolving]
  - Graves^ disease [Unknown]

NARRATIVE: CASE EVENT DATE: 20190101
